FAERS Safety Report 24333045 (Version 1)
Quarter: 2024Q3

REPORT INFORMATION
  Report Type: Report from Study
  Country: CN (occurrence: CN)
  Receive Date: 20240918
  Receipt Date: 20240918
  Transmission Date: 20241016
  Serious: Yes (Hospitalization)
  Sender: ALEXION PHARMACEUTICALS
  Company Number: CN-ALXN-202409GLO000243CN

PATIENT

DRUGS (23)
  1. SOLIRIS [Suspect]
     Active Substance: ECULIZUMAB
     Indication: Paroxysmal nocturnal haemoglobinuria
     Dosage: 600 MILLIGRAM, SINGLE
     Route: 065
     Dates: start: 20240429, end: 20240429
  2. SOLIRIS [Suspect]
     Active Substance: ECULIZUMAB
     Dosage: 600 MILLIGRAM, Q2W
     Route: 065
     Dates: start: 20240521, end: 20240605
  3. SOLIRIS [Suspect]
     Active Substance: ECULIZUMAB
     Dosage: 900 MILLIGRAM, SINGLE
     Route: 065
     Dates: start: 20240613, end: 20240613
  4. SOLIRIS [Suspect]
     Active Substance: ECULIZUMAB
     Dosage: 900 MILLIGRAM, Q2W
     Route: 065
     Dates: start: 20240627, end: 20240730
  5. METHYLPREDNISOLONE [Concomitant]
     Active Substance: METHYLPREDNISOLONE
     Indication: Paroxysmal nocturnal haemoglobinuria
     Dosage: UNK
     Route: 065
     Dates: start: 202402
  6. OMEPRAZOLE [Concomitant]
     Active Substance: OMEPRAZOLE
     Indication: Chronic gastritis
     Dosage: UNK
     Route: 065
     Dates: start: 201912, end: 20240509
  7. FOLIC ACID [Concomitant]
     Active Substance: FOLIC ACID
     Indication: Paroxysmal nocturnal haemoglobinuria
     Dosage: UNK
     Route: 065
     Dates: start: 201912
  8. CYANOCOBALAMIN\FOLIC ACID [Concomitant]
     Active Substance: CYANOCOBALAMIN\FOLIC ACID
     Indication: Paroxysmal nocturnal haemoglobinuria
     Dosage: UNK
     Dates: start: 2019, end: 20240506
  9. Compound vitamin b [Concomitant]
     Indication: Paroxysmal nocturnal haemoglobinuria
     Dosage: UNK
     Route: 065
     Dates: start: 20240425, end: 20240429
  10. ESZOPICLONE [Concomitant]
     Active Substance: ESZOPICLONE
     Indication: Sleep disorder
     Dosage: UNK
     Route: 065
     Dates: start: 20240425, end: 20240429
  11. ESZOPICLONE [Concomitant]
     Active Substance: ESZOPICLONE
     Dosage: UNK
     Route: 065
     Dates: start: 20240506, end: 20240510
  12. ESZOPICLONE [Concomitant]
     Active Substance: ESZOPICLONE
     Dosage: UNK
     Route: 065
     Dates: end: 20240510
  13. TEPRENONE [Concomitant]
     Active Substance: TEPRENONE
     Indication: Chronic gastritis
     Dosage: UNK
     Route: 065
     Dates: start: 20240425
  14. PHOSPHOLIPID [Concomitant]
     Active Substance: PHOSPHOLIPID
     Indication: Prophylaxis
     Dosage: UNK
     Dates: start: 20240427, end: 20240429
  15. PIPERACILLIN AND TAZOBACTAM [Concomitant]
     Active Substance: PIPERACILLIN SODIUM\TAZOBACTAM SODIUM
     Indication: Cystitis
     Dosage: UNK
     Route: 065
     Dates: start: 20240506, end: 20240512
  16. RABEPRAZOLE SODIUM [Concomitant]
     Active Substance: RABEPRAZOLE SODIUM
     Indication: Chronic gastritis
     Dosage: UNK
     Route: 065
     Dates: start: 20240510
  17. ZOLPIDEM TARTRATE [Concomitant]
     Active Substance: ZOLPIDEM TARTRATE
     Indication: Sleep disorder
     Dosage: UNK
     Dates: start: 20240521
  18. ESTAZOLAM [Concomitant]
     Active Substance: ESTAZOLAM
     Indication: Sleep disorder
     Dosage: UNK
     Route: 065
     Dates: start: 20240511, end: 20240511
  19. POTASSIUM CHLORIDE [Concomitant]
     Active Substance: POTASSIUM CHLORIDE
     Indication: Product used for unknown indication
     Dosage: UNK
     Route: 065
     Dates: start: 20240511, end: 20240512
  20. POTASSIUM CHLORIDE [Concomitant]
     Active Substance: POTASSIUM CHLORIDE
     Indication: Product used for unknown indication
     Dosage: UNK
     Route: 065
     Dates: start: 20240511, end: 20240511
  21. POTASSIUM CHLORIDE [Concomitant]
     Active Substance: POTASSIUM CHLORIDE
     Indication: Product used for unknown indication
     Dosage: UNK
     Route: 065
     Dates: start: 20240511, end: 20240512
  22. POTASSIUM CHLORIDE [Concomitant]
     Active Substance: POTASSIUM CHLORIDE
     Indication: Product used for unknown indication
     Dosage: UNK
     Route: 065
     Dates: start: 20240509, end: 20240509
  23. PENICILLIN G SODIUM [Concomitant]
     Active Substance: PENICILLIN G SODIUM
     Indication: Skin test
     Dosage: UNK
     Route: 065
     Dates: start: 20240506, end: 20240506

REACTIONS (1)
  - Cystitis escherichia [Recovered/Resolved]

NARRATIVE: CASE EVENT DATE: 20240803
